FAERS Safety Report 17749390 (Version 10)
Quarter: 2021Q2

REPORT INFORMATION
  Report Type: Spontaneous
  Country: CA (occurrence: CA)
  Receive Date: 20200505
  Receipt Date: 20210608
  Transmission Date: 20210716
  Serious: Yes (Hospitalization, Other)
  Sender: FDA-Public Use
  Company Number: CA-CELLTRION INC.-2018CA019522

PATIENT

DRUGS (24)
  1. INFLECTRA [Suspect]
     Active Substance: INFLIXIMAB-DYYB
     Dosage: 300 MG, WEEKS 0, 2, 6, THEN EVERY 8 WEEKS
     Route: 042
     Dates: start: 20180911, end: 20180911
  2. INFLECTRA [Suspect]
     Active Substance: INFLIXIMAB-DYYB
     Dosage: 300 MG, EVERY 8 WEEKS
     Route: 042
  3. METHOTREXATE. [Concomitant]
     Active Substance: METHOTREXATE
     Indication: CARDIAC SARCOIDOSIS
     Dosage: 10 MG, WEEKLY
  4. PROPOFOL. [Concomitant]
     Active Substance: PROPOFOL
     Dosage: 2.5 MG, 1X/DAY
     Route: 048
  5. RAMIPRIL. [Concomitant]
     Active Substance: RAMIPRIL
     Dosage: 2.5 MG, ONCE DAILY
     Route: 048
     Dates: start: 201502
  6. INFLECTRA [Suspect]
     Active Substance: INFLIXIMAB-DYYB
     Dosage: 300 MG, EVERY 10 WEEKS
     Route: 042
     Dates: start: 20190725, end: 20190725
  7. INFLECTRA [Suspect]
     Active Substance: INFLIXIMAB-DYYB
     Dosage: 300 MG, EVERY 8 WEEKS
     Route: 042
     Dates: start: 20201211, end: 20201211
  8. INFLECTRA [Suspect]
     Active Substance: INFLIXIMAB-DYYB
     Dosage: 300 MG, (EVERY 10 WEEKS)
     Route: 042
     Dates: start: 20210330, end: 20210330
  9. INFLECTRA [Suspect]
     Active Substance: INFLIXIMAB-DYYB
     Dosage: 300 MG, WEEKS 0, 2, 6, THEN EVERY 8 WEEKS
     Route: 042
     Dates: start: 20181109, end: 20181109
  10. INFLECTRA [Suspect]
     Active Substance: INFLIXIMAB-DYYB
     Dosage: 300 MG, EVERY 10 WEEKS
     Route: 042
     Dates: start: 20200817, end: 20200817
  11. INFLECTRA [Suspect]
     Active Substance: INFLIXIMAB-DYYB
     Dosage: 300 MG, WEEKS 0, 2, 6, THEN EVERY 8 WEEKS
     Route: 042
     Dates: start: 20180716, end: 20180716
  12. INFLECTRA [Suspect]
     Active Substance: INFLIXIMAB-DYYB
     Dosage: 300 MG, EVERY 10 WEEKS
     Route: 042
     Dates: start: 20190523, end: 20190523
  13. INFLECTRA [Suspect]
     Active Substance: INFLIXIMAB-DYYB
     Dosage: 300 MG, EVERY 10 WEEKS
     Route: 042
     Dates: start: 20200219, end: 20200219
  14. INFLECTRA [Suspect]
     Active Substance: INFLIXIMAB-DYYB
     Dosage: 300 MG, EVERY 10 WEEKS
     Route: 042
     Dates: start: 20200429, end: 20200429
  15. BISOPROLOL [Concomitant]
     Active Substance: BISOPROLOL
     Dosage: 2.5 MG, TWICE DAILY
     Route: 048
     Dates: start: 201502
  16. INFLECTRA [Suspect]
     Active Substance: INFLIXIMAB-DYYB
     Dosage: 300 MG, WEEKS 0, 2, 6, THEN EVERY 8 WEEKS
     Route: 042
     Dates: start: 20180612, end: 20180612
  17. INFLECTRA [Suspect]
     Active Substance: INFLIXIMAB-DYYB
     Dosage: 300 MG, EVERY 8 WEEKS
     Route: 042
     Dates: start: 20210202, end: 20210202
  18. INFLECTRA [Suspect]
     Active Substance: INFLIXIMAB-DYYB
     Indication: CARDIAC SARCOIDOSIS
     Dosage: 300 MG, WEEKS 0, 2, 6, THEN EVERY 8 WEEKS
     Route: 042
     Dates: start: 20180529, end: 20180529
  19. INFLECTRA [Suspect]
     Active Substance: INFLIXIMAB-DYYB
     Dosage: 300 MG, EVERY 10 WEEKS
     Route: 042
     Dates: start: 20191209, end: 20191209
  20. INFLECTRA [Suspect]
     Active Substance: INFLIXIMAB-DYYB
     Dosage: 300 MG, EVERY 10 WEEKS
     Route: 042
     Dates: start: 20200622, end: 20200622
  21. INFLECTRA [Suspect]
     Active Substance: INFLIXIMAB-DYYB
     Dosage: 300 MG, WEEKS 0, 2, 6, THEN EVERY 8 WEEKS
     Route: 042
     Dates: start: 20190304, end: 20190304
  22. INFLECTRA [Suspect]
     Active Substance: INFLIXIMAB-DYYB
     Dosage: 300 MG, EVERY 10 WEEKS
     Route: 042
     Dates: start: 20190930, end: 20190930
  23. INFLECTRA [Suspect]
     Active Substance: INFLIXIMAB-DYYB
     Dosage: 300 MG,(EVERY 10 WEEKS)
     Route: 042
     Dates: start: 20210529, end: 20210529
  24. PROPOFOL. [Concomitant]
     Active Substance: PROPOFOL
     Dosage: 5 MG, 1X/DAY
     Route: 048

REACTIONS (13)
  - Heart rate irregular [Unknown]
  - Intentional product use issue [Unknown]
  - Heart rate decreased [Not Recovered/Not Resolved]
  - Dyspnoea [Unknown]
  - Drug effective for unapproved indication [Unknown]
  - Off label use [Unknown]
  - Condition aggravated [Recovering/Resolving]
  - Poor venous access [Unknown]
  - Cardiac arrest [Recovering/Resolving]
  - Blood pressure diastolic increased [Unknown]
  - Cough [Unknown]
  - Dizziness [Unknown]
  - Weight increased [Unknown]

NARRATIVE: CASE EVENT DATE: 2018
